FAERS Safety Report 5136024-9 (Version None)
Quarter: 2006Q4

REPORT INFORMATION
  Report Type: 
  Country: None (occurrence: None)
  Receive Date: 20061020
  Receipt Date: 20061006
  Transmission Date: 20070319
  Serious: Yes (Other)
  Sender: FDA-Public Use
  Company Number: 2006BL004933

PATIENT
  Age: 33 Year
  Sex: Female

DRUGS (3)
  1. PREDNISOLONE SODIUM PHOSPHATE [Suspect]
     Indication: DRUG USE FOR UNKNOWN INDICATION
  2. ACTOS [Suspect]
     Indication: DRUG USE FOR UNKNOWN INDICATION
  3. NPH INSULIN [Concomitant]

REACTIONS (5)
  - ANEURYSM [None]
  - INFLAMMATION [None]
  - MACULAR OEDEMA [None]
  - MACULOPATHY [None]
  - RETINAL EXUDATES [None]
